FAERS Safety Report 4596765-9 (Version None)
Quarter: 2005Q1

REPORT INFORMATION
  Report Type: 
  Country: None (occurrence: None)
  Receive Date: 20050228
  Receipt Date: 20031127
  Transmission Date: 20050727
  Serious: Yes (Life-Threatening)
  Sender: FDA-Public Use
  Company Number: 6776

PATIENT
  Age: 55 Year
  Sex: Female

DRUGS (5)
  1. METHOTREXATE [Suspect]
     Indication: CROHN'S DISEASE
     Dosage: 25 MG SC
     Route: 058
     Dates: start: 20031110, end: 20031110
  2. MESALAMINE [Concomitant]
  3. PREDNISOLONE [Concomitant]
  4. RABEPRAZOLE SODIUM [Concomitant]
  5. FOLIC ACID [Concomitant]

REACTIONS (2)
  - LOCALISED OEDEMA [None]
  - NAUSEA [None]
